FAERS Safety Report 7337304-9 (Version None)
Quarter: 2011Q1

REPORT INFORMATION
  Report Type: 
  Country: None (occurrence: None)
  Receive Date: 20110308
  Receipt Date: 20110303
  Transmission Date: 20110831
  Serious: Yes (Death, Hospitalization, Other)
  Sender: FDA-Public Use
  Company Number: US-ELI_LILLY_AND_COMPANY-US201103001609

PATIENT
  Sex: Female

DRUGS (8)
  1. ASPIRIN [Concomitant]
  2. ANTIBIOTICS [Concomitant]
     Indication: EYE DISORDER
     Route: 047
  3. IMURAN [Concomitant]
     Indication: EYE DISORDER
  4. ANTIHYPERTENSIVES [Concomitant]
     Indication: HYPERTENSION
     Dosage: 2 D/F, UNK
  5. PLAVIX [Concomitant]
  6. TOPROL-XL [Concomitant]
  7. THYROID THERAPY [Concomitant]
     Indication: THYROID DISORDER
  8. FORTEO [Suspect]
     Indication: OSTEOPOROSIS
     Dosage: 20 UG, DAILY (1/D)
     Dates: start: 20100801, end: 20110216

REACTIONS (10)
  - DEATH [None]
  - OXYGEN SATURATION DECREASED [None]
  - GOITRE [None]
  - PNEUMONIA [None]
  - OROPHARYNGEAL PAIN [None]
  - VIRAL INFECTION [None]
  - PAIN [None]
  - HEART RATE INCREASED [None]
  - MALAISE [None]
  - EATING DISORDER [None]
